FAERS Safety Report 15848870 (Version 3)
Quarter: 2019Q1

REPORT INFORMATION
  Report Type: Spontaneous
  Country: US (occurrence: US)
  Receive Date: 20190121
  Receipt Date: 20190208
  Transmission Date: 20190417
  Serious: Yes (Hospitalization)
  Sender: FDA-Public Use
  Company Number: US-PFIZER INC-2018329969

PATIENT
  Age: 39 Year
  Sex: Male
  Weight: 75 kg

DRUGS (3)
  1. VFEND [Suspect]
     Active Substance: VORICONAZOLE
     Indication: PULMONARY MASS
     Dosage: 200 MG, 2X/DAY
  2. VFEND [Suspect]
     Active Substance: VORICONAZOLE
     Indication: FOLLICLE CENTRE LYMPHOMA, FOLLICULAR GRADE I, II, III
     Dosage: 300 MG, 2X/DAY (TAKE 1 AND HALF TABLETS/TAKE 1 1/2 TABLETS (300 MG) PO BID)
     Route: 048
     Dates: start: 20181222
  3. VFEND [Suspect]
     Active Substance: VORICONAZOLE
     Indication: FUNGAL INFECTION
     Dosage: 150 MG, 2X/DAY, (TAKE 1 1/2 TABLETS (300 MG) PO BID)
     Route: 048

REACTIONS (3)
  - Pyrexia [Recovered/Resolved]
  - Immunodeficiency [Recovered/Resolved]
  - Drug ineffective [Unknown]

NARRATIVE: CASE EVENT DATE: 20181222
